FAERS Safety Report 21820807 (Version 1)
Quarter: 2023Q1

REPORT INFORMATION
  Report Type: Spontaneous
  Country: IN (occurrence: IN)
  Receive Date: 20230105
  Receipt Date: 20230105
  Transmission Date: 20230418
  Serious: Yes (Other)
  Sender: FDA-Public Use
  Company Number: IN-drreddys-LIT/IND/22/0159274

PATIENT
  Age: 15 Year
  Sex: Male

DRUGS (3)
  1. CETIRIZINE [Suspect]
     Active Substance: CETIRIZINE HYDROCHLORIDE
     Indication: Hepatitis cholestatic
  2. URSODIOL [Suspect]
     Active Substance: URSODIOL
     Indication: Hepatitis cholestatic
  3. ORNITHINE ASPARTATE [Suspect]
     Active Substance: ORNITHINE ASPARTATE
     Indication: Hepatitis cholestatic

REACTIONS (2)
  - Rectal haemorrhage [Recovered/Resolved]
  - Drug ineffective for unapproved indication [Unknown]
